FAERS Safety Report 21110384 (Version 5)
Quarter: 2022Q3

REPORT INFORMATION
  Report Type: Other
  Country: CA (occurrence: None)
  Receive Date: 20220721
  Receipt Date: 20220831
  Transmission Date: 20221027
  Serious: Yes (Other)
  Sender: FDA-Public Use
  Company Number: CA-ROCHE-2142572

PATIENT
  Age: 65 Year
  Sex: Male

DRUGS (16)
  1. OCREVUS [Suspect]
     Active Substance: OCRELIZUMAB
     Indication: Primary progressive multiple sclerosis
     Dosage: AT 30 CC/HR?LIQUID 300 MG DAY 0 AND 14, THEN 600 MG EVERY 6 MONTHS
     Route: 042
     Dates: start: 20180618
  2. OCREVUS [Suspect]
     Active Substance: OCRELIZUMAB
     Route: 042
     Dates: start: 20181219
  3. OCREVUS [Suspect]
     Active Substance: OCRELIZUMAB
     Dosage: INFUSION 4
     Route: 042
     Dates: start: 20190620
  4. OCREVUS [Suspect]
     Active Substance: OCRELIZUMAB
     Dosage: RECENT DOSE: 30/JUN/2020: 300 MG
     Route: 042
     Dates: start: 20191216
  5. OCREVUS [Suspect]
     Active Substance: OCRELIZUMAB
     Dosage: INFUSION 6
     Route: 042
     Dates: start: 20200630
  6. OCREVUS [Suspect]
     Active Substance: OCRELIZUMAB
     Route: 042
     Dates: start: 20220203
  7. BENADRYL [Suspect]
     Active Substance: DIPHENHYDRAMINE HYDROCHLORIDE
     Indication: Premedication
     Dosage: AT 10:35
     Route: 048
     Dates: start: 20180618
  8. BACLOFEN [Suspect]
     Active Substance: BACLOFEN
     Indication: Premedication
     Route: 065
  9. METHYLPREDNISOLONE [Concomitant]
     Active Substance: METHYLPREDNISOLONE
     Indication: Premedication
     Dosage: AT 08:45
     Route: 042
     Dates: start: 20180618
  10. SODIUM CHLORIDE [Concomitant]
     Active Substance: SODIUM CHLORIDE
  11. SOLU-MEDROL [Concomitant]
     Active Substance: METHYLPREDNISOLONE SODIUM SUCCINATE
     Indication: Premedication
  12. TRAZODONE [Concomitant]
     Active Substance: TRAZODONE HYDROCHLORIDE
     Dosage: FOR SLEEP
  13. ZOPICLONE [Concomitant]
     Active Substance: ZOPICLONE
     Dosage: FOR SLEEP
  14. CANNABIS SATIVA SUBSP. INDICA TOP [Concomitant]
     Active Substance: CANNABIS SATIVA SUBSP. INDICA TOP
  15. ACETAMINOPHEN [Concomitant]
     Active Substance: ACETAMINOPHEN
     Indication: Premedication
     Route: 048
     Dates: start: 20180618
  16. DULOXETINE [Concomitant]
     Active Substance: DULOXETINE

REACTIONS (21)
  - Feeling abnormal [Recovered/Resolved]
  - Blood urine present [Unknown]
  - Infusion related reaction [Recovered/Resolved]
  - Bone pain [Recovered/Resolved]
  - Emotional disorder [Not Recovered/Not Resolved]
  - Fatigue [Recovered/Resolved]
  - Bowel movement irregularity [Recovered/Resolved]
  - Pollakiuria [Recovered/Resolved]
  - Depression [Not Recovered/Not Resolved]
  - Therapeutic product effect decreased [Unknown]
  - Pain [Unknown]
  - Arthritis [Unknown]
  - Asthenia [Unknown]
  - Euphoric mood [Unknown]
  - Back pain [Not Recovered/Not Resolved]
  - Somnolence [Not Recovered/Not Resolved]
  - Laziness [Not Recovered/Not Resolved]
  - Drug ineffective [Unknown]
  - Depressed mood [Not Recovered/Not Resolved]
  - SARS-CoV-2 test positive [Unknown]
  - Memory impairment [Unknown]

NARRATIVE: CASE EVENT DATE: 20180618
